FAERS Safety Report 9679452 (Version 1)
Quarter: 2013Q4

REPORT INFORMATION
  Report Type: Spontaneous
  Country: US (occurrence: US)
  Receive Date: 20131109
  Receipt Date: 20131109
  Transmission Date: 20140711
  Serious: No
  Sender: FDA-Public Use
  Company Number: US-SANOFI-AVENTIS-2013SA048231

PATIENT
  Age: 72 Year
  Sex: Female

DRUGS (4)
  1. ALLEGRA-D [Suspect]
     Indication: SNEEZING
     Route: 048
  2. ALLEGRA-D [Suspect]
     Indication: SINUS CONGESTION
     Route: 048
  3. ALLEGRA-D [Suspect]
     Indication: EYE PRURITUS
     Route: 048
  4. ALLEGRA-D [Suspect]
     Indication: LACRIMATION INCREASED
     Route: 048

REACTIONS (1)
  - Drug ineffective [Unknown]
